FAERS Safety Report 9851432 (Version 4)
Quarter: 2014Q2

REPORT INFORMATION
  Report Type: Spontaneous
  Country: US (occurrence: US)
  Receive Date: 20140129
  Receipt Date: 20140501
  Transmission Date: 20141212
  Serious: Yes (Hospitalization)
  Sender: FDA-Public Use
  Company Number: US-BIOGENIDEC-2014BI007377

PATIENT
  Age: 68 Year
  Sex: Female
  Weight: 68 kg

DRUGS (31)
  1. AVONEX [Suspect]
     Indication: MULTIPLE SCLEROSIS
     Route: 030
  2. AVONEX [Suspect]
     Indication: MULTIPLE SCLEROSIS
     Route: 030
  3. BACLOFEN [Concomitant]
     Route: 048
  4. GABAPENTIN [Concomitant]
     Route: 048
  5. LISINOPRIL [Concomitant]
     Route: 048
  6. AMITRIPTYLENE HCL [Concomitant]
     Route: 048
  7. ATENOLOL [Concomitant]
     Route: 048
  8. BABY ASPIRIN [Concomitant]
     Route: 048
  9. CALCIUM [Concomitant]
     Route: 048
  10. CHOLESTYRAMINE [Concomitant]
     Route: 048
  11. DICYCLOMINE [Concomitant]
     Route: 048
  12. DILTZAC ER [Concomitant]
     Route: 048
  13. DORZOLAMIDE-TIMOLOL [Concomitant]
  14. EPIPEN [Concomitant]
     Route: 030
  15. EVISTA [Concomitant]
     Route: 048
  16. LORATADINE [Concomitant]
     Route: 048
  17. LUMIGAN [Concomitant]
  18. MELOXICAM [Concomitant]
     Route: 048
  19. MICONAZOLE [Concomitant]
  20. PANDEL [Concomitant]
  21. PRAVASTATIN [Concomitant]
     Route: 048
  22. PROMISEB [Concomitant]
  23. RANITIDINE [Concomitant]
     Route: 048
  24. VITAMIN B-12 [Concomitant]
     Route: 048
  25. VITAMIN C [Concomitant]
     Route: 048
  26. VITAMIN D [Concomitant]
     Route: 048
  27. VITAMIN E [Concomitant]
     Route: 048
  28. ASPIR EC [Concomitant]
     Route: 048
  29. COMBIGAN [Concomitant]
  30. DIAZEPAM [Concomitant]
     Route: 048
  31. DIPHENOXYLATE-ATROPINE [Concomitant]
     Route: 048

REACTIONS (22)
  - Glaucoma [Not Recovered/Not Resolved]
  - Irritable bowel syndrome [Recovered/Resolved]
  - Back pain [Not Recovered/Not Resolved]
  - Carpal tunnel syndrome [Not Recovered/Not Resolved]
  - Cerebral small vessel ischaemic disease [Not Recovered/Not Resolved]
  - Intervertebral disc degeneration [Not Recovered/Not Resolved]
  - Osteoarthritis [Not Recovered/Not Resolved]
  - Neuropathy peripheral [Not Recovered/Not Resolved]
  - Cataract [Recovered/Resolved]
  - Diverticulitis [Recovered/Resolved]
  - Vitamin D deficiency [Not Recovered/Not Resolved]
  - Vitamin B12 deficiency [Not Recovered/Not Resolved]
  - Optic neuritis [Unknown]
  - Dysthymic disorder [Unknown]
  - Arthritis [Not Recovered/Not Resolved]
  - Paraesthesia [Not Recovered/Not Resolved]
  - Benign vulval neoplasm [Recovered/Resolved]
  - Bladder prolapse [Not Recovered/Not Resolved]
  - Hypotonia [Not Recovered/Not Resolved]
  - Myalgia [Recovered/Resolved]
  - Chills [Recovered/Resolved]
  - Headache [Recovered/Resolved]
